APPROVED DRUG PRODUCT: VIGABATRIN
Active Ingredient: VIGABATRIN
Strength: 500MG/PACKET
Dosage Form/Route: FOR SOLUTION;ORAL
Application: A213519 | Product #001 | TE Code: AA
Applicant: ANNORA PHARMA PRIVATE LTD
Approved: Jan 26, 2021 | RLD: No | RS: No | Type: RX